FAERS Safety Report 6005341-2 (Version None)
Quarter: 2008Q4

REPORT INFORMATION
  Report Type: 
  Country: None (occurrence: None)
  Receive Date: 20081216
  Receipt Date: 20081209
  Transmission Date: 20090506
  Serious: Yes (Death)
  Sender: FDA-Public Use
  Company Number: US-GILEAD-2008-0019418

PATIENT
  Age: 68 Year
  Sex: Male
  Weight: 90.8 kg

DRUGS (12)
  1. LETAIRIS [Suspect]
     Indication: COR PULMONALE CHRONIC
     Route: 048
     Dates: start: 20080506
  2. VIAGRA [Concomitant]
  3. ZOCOR [Concomitant]
  4. NASACORT [Concomitant]
  5. ASPIRIN [Concomitant]
  6. IBUPROFEN [Concomitant]
  7. CALCIUM +D [Concomitant]
  8. ACETYLCYSTEINE [Concomitant]
  9. MULTI-VITAMIN [Concomitant]
  10. MUCINEX [Concomitant]
  11. VITAMIN E [Concomitant]
  12. ASCORBIC ACID [Concomitant]

REACTIONS (1)
  - DEATH [None]
